FAERS Safety Report 20152946 (Version 1)
Quarter: 2021Q4

REPORT INFORMATION
  Report Type: Spontaneous
  Country: US (occurrence: None)
  Receive Date: 20211206
  Receipt Date: 20211206
  Transmission Date: 20220303
  Serious: No
  Sender: FDA-Public Use
  Company Number: None

PATIENT
  Age: 45 Year
  Sex: Female
  Weight: 94.95 kg

DRUGS (8)
  1. .DELTA.8-TETRAHYDROCANNABINOL\DEVICE\HERBALS [Suspect]
     Active Substance: .DELTA.8-TETRAHYDROCANNABINOL\DEVICE\HERBALS
     Indication: Anxiety
     Route: 048
     Dates: start: 20211206, end: 20211206
  2. .DELTA.8-TETRAHYDROCANNABINOL\DEVICE\HERBALS [Suspect]
     Active Substance: .DELTA.8-TETRAHYDROCANNABINOL\DEVICE\HERBALS
     Indication: Muscle tightness
  3. PRILOSEC [Concomitant]
     Active Substance: OMEPRAZOLE MAGNESIUM
  4. losinopril [Concomitant]
  5. AMLODIPINE [Concomitant]
     Active Substance: AMLODIPINE BESYLATE
  6. BUPROPION [Concomitant]
     Active Substance: BUPROPION
  7. VITAMIN D [Concomitant]
     Active Substance: VITAMIN D NOS
  8. IRON [Concomitant]
     Active Substance: IRON

REACTIONS (1)
  - Euphoric mood [None]

NARRATIVE: CASE EVENT DATE: 20211206
